FAERS Safety Report 5007991-9 (Version None)
Quarter: 2006Q1

REPORT INFORMATION
  Report Type: 
  Country: None (occurrence: None)
  Receive Date: 20060331
  Receipt Date: 20051102
  Transmission Date: 20060701
  Serious: Yes (Hospitalization)
  Sender: FDA-Public Use
  Company Number: US149474

PATIENT
  Age: 45 Year
  Sex: Female
  Weight: 63.1 kg

DRUGS (11)
  1. NEULASTA [Suspect]
     Indication: CHEMOTHERAPY
     Dosage: 6 MG, 1 IN 1 DAYS, SC
     Route: 058
     Dates: start: 20050623, end: 20050623
  2. EPIRUBICIN HYDROCHLORIDE [Concomitant]
  3. CYCLOPHOSPHAMIDE [Concomitant]
  4. FLUOROURACIL [Concomitant]
  5. SIMVASTATIN [Concomitant]
  6. ESCITALOPRAM OXALATE [Concomitant]
  7. FISH OIL [Concomitant]
  8. ESOMEPRAZOLE MAGNESIUM [Concomitant]
  9. DIHYDROXYALUMINUM SODIUM CARBONATE [Concomitant]
  10. ACYCLOVIR [Concomitant]
  11. PROPRANOLOL HYDROCHLORIDE [Concomitant]

REACTIONS (1)
  - FEBRILE NEUTROPENIA [None]
